FAERS Safety Report 4726431-8 (Version None)
Quarter: 2005Q3

REPORT INFORMATION
  Report Type: 
  Country: None (occurrence: None)
  Receive Date: 20050726
  Receipt Date: 20050324
  Transmission Date: 20060218
  Serious: No
  Sender: FDA-Public Use
  Company Number: REM_00095_2005

PATIENT
  Age: 53 Year
  Sex: Female

DRUGS (7)
  1. REMODULIN [Suspect]
     Indication: PULMONARY HYPERTENSION
     Dosage: 98 NG/KG/MIN CONTINUOUS SC
     Route: 058
     Dates: start: 19980104
  2. COUMADIN [Concomitant]
  3. DIGOXIN [Concomitant]
  4. LASIX [Concomitant]
  5. VASOTEC RPD [Concomitant]
  6. ALDACTONE [Concomitant]
  7. TRACLEER [Concomitant]

REACTIONS (2)
  - INFUSION SITE INFECTION [None]
  - INFUSION SITE PAIN [None]
